FAERS Safety Report 4950092-6 (Version None)
Quarter: 2006Q1

REPORT INFORMATION
  Report Type: 
  Country: None (occurrence: None)
  Receive Date: 20060320
  Receipt Date: 20060320
  Transmission Date: 20060701
  Serious: Yes (Life-Threatening)
  Sender: FDA-Public Use
  Company Number: None

PATIENT
  Age: 32 Year
  Sex: Male
  Weight: 90.7194 kg

DRUGS (1)
  1. LEVAQUIN [Suspect]
     Indication: PNEUMONIA
     Dosage: UNKNOWN IV DRIP  30 MINUTE   IV DRIP
     Route: 041
     Dates: start: 20020410, end: 20020413

REACTIONS (3)
  - DYSPNOEA [None]
  - URTICARIA GENERALISED [None]
  - WHEEZING [None]
